FAERS Safety Report 11587898 (Version 5)
Quarter: 2016Q1

REPORT INFORMATION
  Report Type: Spontaneous
  Country: US (occurrence: US)
  Receive Date: 20151001
  Receipt Date: 20160107
  Transmission Date: 20160525
  Serious: No
  Sender: FDA-Public Use
  Company Number: US-009507513-1509USA014593

PATIENT
  Sex: Female
  Weight: 99.77 kg

DRUGS (1)
  1. NEXPLANON [Suspect]
     Active Substance: ETONOGESTREL
     Dosage: UNK
     Route: 059
     Dates: start: 20150820, end: 20150924

REACTIONS (3)
  - Device expulsion [Recovered/Resolved]
  - Device deployment issue [Recovered/Resolved]
  - Implant site infection [Unknown]

NARRATIVE: CASE EVENT DATE: 2015
